FAERS Safety Report 7795315-3 (Version None)
Quarter: 2011Q4

REPORT INFORMATION
  Report Type: 
  Country: None (occurrence: None)
  Receive Date: 20111004
  Receipt Date: 20110927
  Transmission Date: 20120403
  Serious: Yes (Hospitalization)
  Sender: FDA-Public Use
  Company Number: PHEH2011US05528

PATIENT
  Age: 13 Year
  Sex: Female

DRUGS (2)
  1. TOBI [Suspect]
     Dosage: 1 DF, TWICE A DAY EVERY OTHER MONTH
     Dates: start: 20071127
  2. PULMOZYME [Concomitant]

REACTIONS (1)
  - CYSTIC FIBROSIS [None]
